FAERS Safety Report 21816367 (Version 2)
Quarter: 2023Q1

REPORT INFORMATION
  Report Type: Spontaneous
  Country: US (occurrence: None)
  Receive Date: 20230104
  Receipt Date: 20230215
  Transmission Date: 20230417
  Serious: Yes (Other)
  Sender: FDA-Public Use
  Company Number: 2022A418809

PATIENT
  Sex: Male
  Weight: 97.5 kg

DRUGS (1)
  1. BYDUREON BCISE [Suspect]
     Active Substance: EXENATIDE
     Indication: Type 2 diabetes mellitus
     Route: 058

REACTIONS (8)
  - Cardiac pacemaker insertion [Unknown]
  - Blood glucose increased [Unknown]
  - Blood pressure increased [Unknown]
  - Intentional product misuse [Unknown]
  - Therapy change [Unknown]
  - Device use error [Unknown]
  - Incorrect dose administered by device [Unknown]
  - Product dose omission issue [Unknown]
